FAERS Safety Report 5577301-7 (Version None)
Quarter: 2007Q4

REPORT INFORMATION
  Report Type: 
  Country: None (occurrence: None)
  Receive Date: 20071130
  Receipt Date: 20070725
  Transmission Date: 20080405
  Serious: No
  Sender: FDA-Public Use
  Company Number: US200707006201

PATIENT
  Age: 53 Year
  Sex: Female

DRUGS (5)
  1. BYETTA [Suspect]
     Indication: INSULIN-REQUIRING TYPE II DIABETES MELLITUS
     Dosage: 5 UG, 2/D, SUBCUTANEOUS
     Route: 058
     Dates: start: 20070721
  2. METFORMIN HCL [Concomitant]
  3. AMARYL [Concomitant]
  4. LANTUS [Concomitant]
  5. COZAAR [Concomitant]

REACTIONS (4)
  - DIARRHOEA [None]
  - FEELING COLD [None]
  - FEELING JITTERY [None]
  - HEADACHE [None]
